FAERS Safety Report 4766436-4 (Version None)
Quarter: 2005Q3

REPORT INFORMATION
  Report Type: 
  Country: None (occurrence: None)
  Receive Date: 20050912
  Receipt Date: 20050906
  Transmission Date: 20060218
  Serious: Yes (Hospitalization)
  Sender: FDA-Public Use
  Company Number: CH-ROCHE-416700

PATIENT
  Age: 62 Year
  Sex: Male

DRUGS (6)
  1. MYCOPHENOLATE MOFETIL [Suspect]
     Route: 048
     Dates: start: 20050111
  2. COSAAR PLUS [Concomitant]
     Dosage: TOTAL DAILY DOSE REPORTED AS 1 X 1.
     Dates: start: 20030826
  3. ENALAPRIL [Concomitant]
     Dates: start: 20041021
  4. ARANESP [Concomitant]
     Dates: start: 20050111
  5. ACIDUM FOLICUM [Concomitant]
     Dates: start: 20040826
  6. RESONIUM [Concomitant]
     Dates: start: 20050211

REACTIONS (1)
  - ANAEMIA [None]
